FAERS Safety Report 8523411-1 (Version None)
Quarter: 2012Q3

REPORT INFORMATION
  Report Type: 
  Country: None (occurrence: None)
  Receive Date: 20120720
  Receipt Date: 20100818
  Transmission Date: 20120928
  Serious: Yes (Hospitalization, Disabling, Other)
  Sender: FDA-Public Use
  Company Number: US-BAYER-201016841NA

PATIENT
  Age: 46 Year
  Sex: Female
  Weight: 102.27 kg

DRUGS (13)
  1. CYTOXAN [Concomitant]
     Indication: SYSTEMIC LUPUS ERYTHEMATOSUS
     Dates: start: 20060101
  2. VIGAMOX [Concomitant]
  3. YASMIN [Suspect]
     Indication: DYSMENORRHOEA
  4. NAPROXEN [Concomitant]
     Dates: start: 20060101
  5. CLOBETASOL PROPIONATE [Concomitant]
     Indication: SYSTEMIC LUPUS ERYTHEMATOSUS
     Dates: start: 20060101
  6. AZATHIOPRINE [Concomitant]
     Route: 048
     Dates: start: 20070201
  7. BEXTRA [Concomitant]
     Indication: SYSTEMIC LUPUS ERYTHEMATOSUS
  8. PROMETHAZINE [Concomitant]
  9. YASMIN [Suspect]
     Indication: CONTRACEPTION
     Dosage: UNK
     Route: 048
     Dates: start: 20040128, end: 20070215
  10. NAPROXEN [Concomitant]
     Indication: SYSTEMIC LUPUS ERYTHEMATOSUS
     Dates: start: 20030101
  11. NYSTATIN [Concomitant]
     Indication: LUPUS-LIKE SYNDROME
     Dates: start: 20060101
  12. AZITHROMYCIN [Concomitant]
  13. IBUPROFEN [Concomitant]

REACTIONS (15)
  - THROMBOSIS [None]
  - PAIN IN EXTREMITY [None]
  - SYSTEMIC LUPUS ERYTHEMATOSUS [None]
  - LIMB DEFORMITY [None]
  - VARICOSE VEIN [None]
  - ARTHRALGIA [None]
  - SKIN WARM [None]
  - LOWER EXTREMITY MASS [None]
  - OEDEMA PERIPHERAL [None]
  - DEEP VEIN THROMBOSIS [None]
  - MUSCLE SPASMS [None]
  - MUSCLE TIGHTNESS [None]
  - THROMBOPHLEBITIS SUPERFICIAL [None]
  - ERYTHEMA [None]
  - LIMB DISCOMFORT [None]
